FAERS Safety Report 6229792-6 (Version None)
Quarter: 2009Q2

REPORT INFORMATION
  Report Type: 
  Country: None (occurrence: None)
  Receive Date: 20090615
  Receipt Date: 20090603
  Transmission Date: 20091009
  Serious: Yes (Hospitalization, Other)
  Sender: FDA-Public Use
  Company Number: US-PFIZER INC-2009186359

PATIENT
  Sex: Female
  Weight: 115.21 kg

DRUGS (5)
  1. NEURONTIN [Suspect]
     Indication: TARSAL TUNNEL SYNDROME
     Dosage: 1200 MG, 3X/DAY
  2. CELEBREX [Suspect]
     Indication: ARTHRITIS
     Dates: end: 20081201
  3. DILANTIN-125 [Suspect]
     Indication: PAIN
     Dates: start: 20081201, end: 20081201
  4. KLONOPIN [Suspect]
     Indication: ANXIETY
     Dosage: UNK
  5. GLUCOPHAGE [Concomitant]
     Indication: DIABETES MELLITUS
     Dosage: UNK

REACTIONS (4)
  - HALLUCINATION [None]
  - HEAD INJURY [None]
  - ROAD TRAFFIC ACCIDENT [None]
  - SPINAL FRACTURE [None]
